FAERS Safety Report 4598863-2 (Version None)
Quarter: 2005Q1

REPORT INFORMATION
  Report Type: 
  Country: None (occurrence: None)
  Receive Date: 20050301
  Receipt Date: 20050105
  Transmission Date: 20050727
  Serious: Yes (Hospitalization, Other)
  Sender: FDA-Public Use
  Company Number: 2005025841

PATIENT
  Age: 37 Year
  Sex: Male
  Weight: 141.5223 kg

DRUGS (6)
  1. BEXTRA [Suspect]
     Indication: PAIN
     Dosage: 10 MG (10 MG, 1 IN 1 D), ORAL
     Route: 048
     Dates: start: 20030201, end: 20040201
  2. PROCHLORPERAZINE EDISYLATE [Concomitant]
  3. FENTANYL(FENTANYL) [Concomitant]
  4. CARISOPRODOL [Concomitant]
  5. VICODIN [Concomitant]
  6. IRON (IRON) [Concomitant]

REACTIONS (2)
  - ABDOMINAL PAIN UPPER [None]
  - HAEMORRHAGE [None]
